FAERS Safety Report 9958668 (Version 1)
Quarter: 2014Q1

REPORT INFORMATION
  Report Type: Spontaneous
  Country: CA (occurrence: CA)
  Receive Date: 20140305
  Receipt Date: 20140305
  Transmission Date: 20141002
  Serious: Yes (Life-Threatening, Hospitalization, Disabling)
  Sender: FDA-Public Use
  Company Number: CA-ROCHE-1355138

PATIENT
  Age: 66 Year
  Sex: Female
  Weight: 54 kg

DRUGS (6)
  1. AVASTIN [Suspect]
     Indication: PRODUCT USED FOR UNKNOWN INDICATION
     Route: 042
  2. FRAGMIN [Suspect]
     Indication: PRODUCT USED FOR UNKNOWN INDICATION
     Dosage: 5000 IU (ANTI-XA)/0.2 ML
     Route: 058
  3. FLUOROURACIL [Concomitant]
     Route: 042
  4. ELOXATIN [Concomitant]
     Route: 042
  5. LEUCOVORIN [Concomitant]
     Route: 042
  6. XELODA [Concomitant]
     Route: 048

REACTIONS (6)
  - Haemorrhagic stroke [Unknown]
  - Headache [Unknown]
  - Hemiparesis [Unknown]
  - Hemiplegia [Unknown]
  - Subarachnoid haemorrhage [Unknown]
  - Subdural haematoma [Unknown]
